FAERS Safety Report 22280014 (Version 1)
Quarter: 2023Q2

REPORT INFORMATION
  Report Type: Spontaneous
  Country: FR (occurrence: FR)
  Receive Date: 20230503
  Receipt Date: 20230503
  Transmission Date: 20230721
  Serious: Yes (Hospitalization)
  Sender: FDA-Public Use
  Company Number: None

PATIENT
  Age: 40 Year
  Sex: Female
  Weight: 62 kg

DRUGS (1)
  1. NAPROXEN [Suspect]
     Active Substance: NAPROXEN
     Indication: Back pain
     Dates: start: 20221115, end: 20221115

REACTIONS (3)
  - Cellulitis streptococcal [Recovering/Resolving]
  - Laryngeal necrosis [Recovering/Resolving]
  - Epiglottitis [Recovering/Resolving]

NARRATIVE: CASE EVENT DATE: 20221101
